FAERS Safety Report 9297108 (Version 5)
Quarter: 2013Q3

REPORT INFORMATION
  Report Type: Report from Study
  Country: US (occurrence: US)
  Receive Date: 20130520
  Receipt Date: 20130911
  Transmission Date: 20140515
  Serious: Yes (Hospitalization)
  Sender: FDA-Public Use
  Company Number: US-ROCHE-1219728

PATIENT
  Age: 61 Year
  Sex: Male

DRUGS (3)
  1. PEGASYS [Suspect]
     Indication: CHRONIC HEPATITIS C
     Route: 058
     Dates: start: 20130401
  2. RIBASPHERE [Suspect]
     Indication: CHRONIC HEPATITIS C
     Route: 048
     Dates: start: 20130401
  3. TELAPREVIR [Suspect]
     Indication: CHRONIC HEPATITIS C
     Route: 065
     Dates: start: 20130401, end: 20130623

REACTIONS (25)
  - Nephrolithiasis [Unknown]
  - Haemorrhoids [Not Recovered/Not Resolved]
  - Rash [Not Recovered/Not Resolved]
  - Anorectal discomfort [Recovered/Resolved]
  - Alopecia [Unknown]
  - Pruritus [Not Recovered/Not Resolved]
  - Anorectal discomfort [Recovered/Resolved]
  - Swelling face [Unknown]
  - Oedema mouth [Unknown]
  - Abscess oral [Unknown]
  - White blood cell count decreased [Unknown]
  - Proctalgia [Not Recovered/Not Resolved]
  - Proctalgia [Not Recovered/Not Resolved]
  - Oropharyngeal pain [Recovering/Resolving]
  - Influenza like illness [Unknown]
  - Productive cough [Unknown]
  - Memory impairment [Unknown]
  - Amnesia [Unknown]
  - Rhinorrhoea [Unknown]
  - Sneezing [Unknown]
  - Sneezing [Unknown]
  - Asthenia [Unknown]
  - Hyperhidrosis [Unknown]
  - Abdominal pain upper [Unknown]
  - Constipation [Unknown]
